FAERS Safety Report 4841888-X (Version None)
Quarter: 2005Q4

REPORT INFORMATION
  Report Type: 
  Country: None (occurrence: None)
  Receive Date: 20051130
  Receipt Date: 20050923
  Transmission Date: 20060501
  Serious: No
  Sender: FDA-Public Use
  Company Number: US-GLAXOSMITHKLINE-A0575713A

PATIENT
  Age: 45 Year
  Sex: Female

DRUGS (4)
  1. WELLBUTRIN XL [Suspect]
     Indication: DEPRESSION
     Dosage: 150MG PER DAY
     Route: 048
  2. VITAMINS [Concomitant]
  3. CALCIUM GLUCONATE [Concomitant]
  4. PROZAC [Concomitant]

REACTIONS (4)
  - AGGRESSION [None]
  - AGITATION [None]
  - CRYING [None]
  - SCREAMING [None]
